FAERS Safety Report 7518593-4 (Version None)
Quarter: 2011Q2

REPORT INFORMATION
  Report Type: 
  Country: None (occurrence: None)
  Receive Date: 20110602
  Receipt Date: 20110523
  Transmission Date: 20111010
  Serious: Yes (Death, Hospitalization, Other)
  Sender: FDA-Public Use
  Company Number: US-PFIZER INC-2011117564

PATIENT
  Age: 19 Year
  Sex: Male

DRUGS (2)
  1. AMLODIPINE BESYLATE [Suspect]
     Indication: SUICIDE ATTEMPT
     Dosage: 70 DF X 10 MG
     Route: 048
  2. LISINOPRIL [Suspect]
     Indication: SUICIDE ATTEMPT
     Dosage: 30 DOSAGE FORMS
     Route: 048

REACTIONS (5)
  - OVERDOSE [None]
  - HYPOTENSION [None]
  - HAEMODYNAMIC INSTABILITY [None]
  - PULSE ABSENT [None]
  - COMPLETED SUICIDE [None]
